FAERS Safety Report 12349182 (Version 1)
Quarter: 2016Q2

REPORT INFORMATION
  Report Type: Spontaneous
  Country: US (occurrence: US)
  Receive Date: 20160509
  Receipt Date: 20160509
  Transmission Date: 20160815
  Serious: Yes (Disabling, Other)
  Sender: FDA-Public Use
  Company Number: US-JAZZ-2014-US-003211

PATIENT
  Sex: Female

DRUGS (3)
  1. XYREM [Suspect]
     Active Substance: SODIUM OXYBATE
     Dosage: DOSE ADJUSTMENTS
     Dates: start: 2010, end: 2011
  2. XYREM [Suspect]
     Active Substance: SODIUM OXYBATE
     Dosage: 4.5 G, BID
     Route: 048
     Dates: start: 201104, end: 2013
  3. XYREM [Suspect]
     Active Substance: SODIUM OXYBATE
     Indication: NARCOLEPSY
     Dosage: 2.25 G, BID
     Route: 048
     Dates: start: 201010, end: 2010

REACTIONS (9)
  - Malaise [Unknown]
  - Weight increased [Unknown]
  - Narcolepsy [Unknown]
  - Fibromyalgia [Recovering/Resolving]
  - Depressed level of consciousness [Unknown]
  - Bedridden [Unknown]
  - Arnold-Chiari malformation [Unknown]
  - Condition aggravated [Unknown]
  - Memory impairment [Unknown]
